FAERS Safety Report 12166259 (Version 4)
Quarter: 2017Q1

REPORT INFORMATION
  Report Type: Report from Study
  Country: CN (occurrence: CN)
  Receive Date: 20160309
  Receipt Date: 20170324
  Transmission Date: 20170428
  Serious: Yes (Hospitalization, Other)
  Sender: FDA-Public Use
  Company Number: PHHY2016CN029931

PATIENT
  Age: 25 Year
  Sex: Female
  Weight: 51 kg

DRUGS (140)
  1. TACROLIMUS. [Suspect]
     Active Substance: TACROLIMUS
     Indication: RENAL TRANSPLANT
     Dosage: 5 MG, QD
     Route: 065
     Dates: start: 20151205, end: 20151213
  2. TACROLIMUS. [Suspect]
     Active Substance: TACROLIMUS
     Dosage: 4.5 MG, QD
     Route: 065
     Dates: start: 20151213, end: 20151217
  3. TACROLIMUS. [Suspect]
     Active Substance: TACROLIMUS
     Dosage: 3.5 MG, QD
     Route: 065
     Dates: start: 20151216, end: 20151224
  4. TACROLIMUS. [Suspect]
     Active Substance: TACROLIMUS
     Dosage: 3 MG, QD
     Route: 065
     Dates: start: 20151225, end: 20160112
  5. SODIUM CHLORIDE COMPOUND INJECTION [Concomitant]
     Dosage: 500 ML, SOS
     Dates: start: 20160120, end: 20160120
  6. ADALAT [Concomitant]
     Active Substance: NIFEDIPINE
     Dosage: 30 MG, SOS
     Route: 048
     Dates: start: 20151209, end: 20151209
  7. BISOPROLOL FUMARATE. [Concomitant]
     Active Substance: BISOPROLOL FUMARATE
     Indication: HYPERTENSION
     Dosage: 5 MG, QD
     Route: 048
     Dates: start: 20151210, end: 20151210
  8. BACTERIAL LYSATES [Concomitant]
     Dosage: 7 MG, QD
     Route: 065
     Dates: start: 20151224, end: 20151224
  9. LIVARACINE [Concomitant]
     Dosage: 2500 IU, SOS
     Route: 042
     Dates: start: 20151225, end: 20151225
  10. ALOSTIN//ALPROSTADIL [Concomitant]
     Dosage: 10 OT, QD
     Route: 042
     Dates: start: 20160115, end: 20160121
  11. SCOPOLAMINE HYDROBROMIDE. [Concomitant]
     Active Substance: SCOPOLAMINE HYDROBROMIDE
     Indication: GASTROOESOPHAGEAL REFLUX PROPHYLAXIS
     Dosage: 300 MG, SOS
     Route: 030
     Dates: start: 20151230, end: 20151230
  12. SMECTA [Concomitant]
     Active Substance: MONTMORILLONITE
     Indication: DIARRHOEA
     Dosage: 6 G, SOS
     Route: 048
     Dates: start: 20151206, end: 20151206
  13. SMECTA [Concomitant]
     Active Substance: MONTMORILLONITE
     Dosage: 6 G, SOS
     Route: 048
     Dates: start: 20151229, end: 20151229
  14. DOPAMINE HYCROCHLORIDE [Concomitant]
     Active Substance: DOPAMINE HYDROCHLORIDE
     Dosage: 10 MG, QD
     Route: 042
     Dates: start: 20151222, end: 20151223
  15. ALLERZIN//PROMETHAZINE HYDROCHLORIDE [Concomitant]
     Dosage: 25 MG, SOS
     Route: 030
     Dates: start: 20151218, end: 20151218
  16. POLYENE PHOSPHATIDYLCHOLINE [Concomitant]
     Active Substance: PHOSPHOLIPID
     Dosage: 228 MG, TID
     Route: 048
     Dates: start: 20151228, end: 20151230
  17. RECOMBINANT HUMAN ERYTHROPOIETIN [Concomitant]
     Active Substance: ERYTHROPOIETIN
     Indication: RED BLOOD CELL COUNT DECREASED
     Dosage: 1000 IU, SOS
     Route: 061
     Dates: start: 20151207, end: 20151207
  18. RECOMBINANT HUMAN ERYTHROPOIETIN [Concomitant]
     Active Substance: ERYTHROPOIETIN
     Dosage: 1000 IU, SOS
     Route: 061
     Dates: start: 20151218, end: 20151218
  19. CEFOTIAM [Concomitant]
     Active Substance: CEFOTIAM
     Indication: INFLAMMATION
     Dosage: 1000 MG, BID
     Route: 042
     Dates: start: 20151204, end: 20151204
  20. MUCOSOLVAN [Concomitant]
     Active Substance: AMBROXOL HYDROCHLORIDE
     Dosage: 15 MG, SOS
     Route: 055
     Dates: start: 20151224, end: 20151224
  21. FUROSEMID ^DAK^ [Concomitant]
     Dosage: 120 MG, SOS
     Route: 042
     Dates: start: 20151204, end: 20151204
  22. FUROSEMID ^DAK^ [Concomitant]
     Dosage: 40 MG, SOS
     Route: 042
     Dates: start: 20151222, end: 20151222
  23. BASILIXIMAB [Suspect]
     Active Substance: BASILIXIMAB
     Indication: RENAL TRANSPLANT
     Dosage: 20 MG, QD
     Route: 065
     Dates: start: 20151203, end: 20151203
  24. FK 506 [Concomitant]
     Active Substance: TACROLIMUS
     Indication: PROPHYLAXIS AGAINST TRANSPLANT REJECTION
     Dosage: 3 MG, QD
     Route: 065
     Dates: start: 20160118, end: 20160214
  25. SODIUM CHLORIDE COMPOUND INJECTION [Concomitant]
     Dosage: 100 ML, SOS
     Route: 042
     Dates: start: 20151207, end: 20151207
  26. GLUTATHIONE [Concomitant]
     Active Substance: GLUTATHIONE
     Dosage: 900 MG, SOS
     Route: 042
     Dates: start: 20151204, end: 20151217
  27. ADALAT [Concomitant]
     Active Substance: NIFEDIPINE
     Dosage: 30 MG, QD
     Route: 048
     Dates: start: 20151209, end: 20151211
  28. HEPARIN SODIUM. [Concomitant]
     Active Substance: HEPARIN SODIUM
     Dosage: 6250 IU, SOS
     Route: 042
     Dates: start: 20151213, end: 20151213
  29. CRAVIT [Concomitant]
     Active Substance: LEVOFLOXACIN
     Dosage: 100 ML, QD
     Route: 042
     Dates: start: 20151204, end: 20151208
  30. CRAVIT [Concomitant]
     Active Substance: LEVOFLOXACIN
     Dosage: 100 ML, QD
     Route: 042
     Dates: start: 20151214, end: 20151217
  31. ALOSTIN//ALPROSTADIL [Concomitant]
     Dosage: 10 OT, QD
     Route: 042
     Dates: start: 20151224, end: 20151230
  32. PANTOPRAZOLE [Concomitant]
     Active Substance: PANTOPRAZOLE SODIUM
     Indication: GASTROOESOPHAGEAL REFLUX PROPHYLAXIS
     Dosage: 40 MG, SOS
     Route: 042
     Dates: start: 20151204, end: 20151204
  33. DICLOFENAC SODIUM W/LIDOCAINE HYDROCHLORIDE [Concomitant]
     Indication: ANALGESIC THERAPY
  34. DILTIAZEM HYDROCHLORIDE. [Concomitant]
     Active Substance: DILTIAZEM HYDROCHLORIDE
     Indication: POOR PERIPHERAL CIRCULATION
     Dosage: 30 MG, SOS
     Route: 048
     Dates: start: 20151206, end: 20151206
  35. PHOSPHOCREATINE SODIUM [Concomitant]
     Dosage: 1 G, SOS
     Route: 042
     Dates: start: 20151204, end: 20151218
  36. VANCOMYCIN HYDROCHLORIDE. [Concomitant]
     Active Substance: VANCOMYCIN HYDROCHLORIDE
     Indication: INFECTION PROPHYLAXIS
     Dosage: 500 MG, BID
     Route: 042
     Dates: start: 20151222, end: 20151222
  37. POLYENE PHOSPHATIDYLCHOLINE [Concomitant]
     Active Substance: PHOSPHOLIPID
     Dosage: 226 MG, TID
     Route: 048
     Dates: start: 20160101
  38. FUROSEMID ^DAK^ [Concomitant]
     Indication: POLYURIA
     Dosage: 40 MG, SOS
     Route: 042
     Dates: start: 20151202, end: 20151202
  39. FUROSEMID ^DAK^ [Concomitant]
     Dosage: 40 MG, SOS
     Route: 042
     Dates: start: 20151205, end: 20151205
  40. FUROSEMID ^DAK^ [Concomitant]
     Dosage: 40 MG, SOS
     Route: 042
     Dates: start: 20151221, end: 20151221
  41. MUCOSOLVAN [Concomitant]
     Active Substance: AMBROXOL HYDROCHLORIDE
     Indication: PRODUCTIVE COUGH
     Dosage: 30 MG, TID
     Route: 042
     Dates: start: 20151208, end: 20151223
  42. METHYLPREDNISOLONE. [Suspect]
     Active Substance: METHYLPREDNISOLONE
     Indication: ALLERGY PROPHYLAXIS
     Dosage: 420 MG, QD
     Route: 065
     Dates: start: 20151204, end: 20151205
  43. PREDNISONE. [Suspect]
     Active Substance: PREDNISONE
     Indication: RENAL TRANSPLANT
     Dosage: 20 MG, QD
     Route: 065
     Dates: start: 20151206, end: 20151219
  44. PREDNISONE. [Suspect]
     Active Substance: PREDNISONE
     Dosage: 20 MG, UNK
     Route: 065
     Dates: start: 20151220
  45. SODIUM CHLORIDE COMPOUND INJECTION [Concomitant]
     Dosage: 100 ML, QD
     Route: 042
     Dates: start: 20151204, end: 20151206
  46. HEPARIN SODIUM. [Concomitant]
     Active Substance: HEPARIN SODIUM
     Indication: PRODUCT USED FOR UNKNOWN INDICATION
     Dosage: 6250 IU, QD
     Route: 042
     Dates: start: 20151204, end: 20151217
  47. CRAVIT [Concomitant]
     Active Substance: LEVOFLOXACIN
     Indication: INFLAMMATION
     Dosage: 100 ML, SOS
     Route: 042
     Dates: start: 20151203, end: 20151203
  48. LIVARACINE [Concomitant]
     Indication: ANTICOAGULANT THERAPY
     Dosage: 2500 IU,SOS
     Route: 061
     Dates: start: 20151218, end: 20151218
  49. PANTOPRAZOLE [Concomitant]
     Active Substance: PANTOPRAZOLE SODIUM
     Dosage: 40 MG, BID
     Route: 042
     Dates: start: 20151204, end: 20151220
  50. CEFOPERAZONE SODIUM W/SULBACTAM SODIUM [Concomitant]
     Indication: INFECTION PROPHYLAXIS
     Dosage: 1500 MG, BID
     Route: 042
     Dates: start: 20151217, end: 20151221
  51. CEPHAZOLINE SODIUM [Concomitant]
     Active Substance: CEFAZOLIN SODIUM
     Indication: SKIN TEST
     Dosage: 500 MG, SOS
     Route: 023
     Dates: start: 20151204, end: 20151204
  52. VANCOMYCIN HYDROCHLORIDE. [Concomitant]
     Active Substance: VANCOMYCIN HYDROCHLORIDE
     Dosage: 500 MG, SOS
     Route: 042
     Dates: start: 20151224, end: 20151230
  53. CETIRIZINE HYDROCHLORIDE. [Concomitant]
     Active Substance: CETIRIZINE HYDROCHLORIDE
     Dosage: 10 MG, SOS
     Route: 048
     Dates: start: 20151218, end: 20151218
  54. DOPAMINE HYCROCHLORIDE [Concomitant]
     Active Substance: DOPAMINE HYDROCHLORIDE
     Indication: POOR PERIPHERAL CIRCULATION
     Dosage: 10 MG, SOS
     Route: 042
     Dates: start: 20151221, end: 20151221
  55. RECOMBINANT HUMAN ERYTHROPOIETIN [Concomitant]
     Active Substance: ERYTHROPOIETIN
     Dosage: 1000 IU, SOS
     Route: 061
     Dates: start: 20151211, end: 20151211
  56. COENZYME [Concomitant]
     Active Substance: UBIDECARENONE
     Dosage: 2 DF,  SOS
     Route: 042
     Dates: start: 20151204, end: 20151205
  57. LEVOCARNITINE. [Concomitant]
     Active Substance: LEVOCARNITINE
     Indication: PROPHYLAXIS
     Dosage: 2 VIALS, SOS
     Route: 042
     Dates: start: 20151204, end: 20151204
  58. MUCOSOLVAN [Concomitant]
     Active Substance: AMBROXOL HYDROCHLORIDE
     Dosage: 30 MG, SOS
     Route: 042
     Dates: start: 20151224, end: 20151224
  59. MYFORTIC [Suspect]
     Active Substance: MYCOPHENOLATE SODIUM
     Dosage: 1440 MG, QD
     Route: 065
     Dates: start: 20151205, end: 20151205
  60. METHYLPREDNISOLONE. [Suspect]
     Active Substance: METHYLPREDNISOLONE
     Dosage: 360 MG, QD
     Route: 065
     Dates: start: 20151206, end: 20151206
  61. FK 506 [Concomitant]
     Active Substance: TACROLIMUS
     Dosage: 2.5 MG, UNK
     Route: 065
  62. MOXIFLOXACIN//MOXIFLOXACIN HYDROCHLORIDE [Concomitant]
     Indication: INFECTION PROPHYLAXIS
     Dosage: 400 MG, SOS
     Route: 042
     Dates: start: 20151212, end: 20151212
  63. MOXIFLOXACIN//MOXIFLOXACIN HYDROCHLORIDE [Concomitant]
     Dosage: 400 MG, SOS
     Route: 042
     Dates: start: 20151213, end: 20151213
  64. GLUTATHIONE [Concomitant]
     Active Substance: GLUTATHIONE
     Indication: PROPHYLAXIS
     Dosage: 900 MG, QD
     Route: 042
     Dates: start: 20151204, end: 20151204
  65. ALOSTIN//ALPROSTADIL [Concomitant]
     Dosage: 10 OT, QD
     Route: 042
     Dates: start: 20151204, end: 20151223
  66. ALLERZIN//PROMETHAZINE HYDROCHLORIDE [Concomitant]
     Dosage: 25 MG, SOS
     Route: 030
     Dates: start: 20151220, end: 20151225
  67. RECOMBINANT HUMAN ERYTHROPOIETIN [Concomitant]
     Active Substance: ERYTHROPOIETIN
     Dosage: 1000 IU, SOS
     Route: 061
     Dates: start: 20151216, end: 20151216
  68. MUCOSOLVAN [Concomitant]
     Active Substance: AMBROXOL HYDROCHLORIDE
     Indication: PRODUCTIVE COUGH
     Dosage: 15 MG, TID
     Route: 055
     Dates: start: 20151204, end: 20151223
  69. MEPREDNISONE [Concomitant]
     Active Substance: MEPREDNISONE
     Dosage: 8 MG, UNK
     Route: 065
     Dates: start: 20160215
  70. MYFORTIC [Suspect]
     Active Substance: MYCOPHENOLATE SODIUM
     Indication: RENAL TRANSPLANT
     Dosage: 720 MG, QD
     Route: 065
     Dates: start: 20151203, end: 20151203
  71. MYFORTIC [Suspect]
     Active Substance: MYCOPHENOLATE SODIUM
     Dosage: 720 MG, QD
     Route: 065
     Dates: start: 20151210, end: 20151217
  72. METHYLPREDNISOLONE. [Suspect]
     Active Substance: METHYLPREDNISOLONE
     Dosage: 40 MG,SOS
     Route: 065
     Dates: start: 20151218, end: 20151218
  73. TACROLIMUS. [Suspect]
     Active Substance: TACROLIMUS
     Dosage: 3 MG, QD
     Route: 065
     Dates: start: 20160118
  74. SODIUM CHLORIDE COMPOUND INJECTION [Concomitant]
     Indication: INFUSION
     Dosage: 1000 ML, QD
     Route: 042
     Dates: start: 20151204, end: 20151204
  75. BISOPROLOL FUMARATE. [Concomitant]
     Active Substance: BISOPROLOL FUMARATE
     Dosage: 5 MG, QD
     Route: 048
     Dates: start: 20151210, end: 20151223
  76. LIQUORICE [Concomitant]
     Active Substance: LICORICE
     Indication: COUGH
     Dosage: 10 ML, TID
     Route: 048
     Dates: start: 20151212, end: 20151218
  77. LIQUORICE [Concomitant]
     Active Substance: LICORICE
     Dosage: 10 ML, TID
     Route: 048
     Dates: start: 20151219
  78. ALBUMIN HUMAN [Concomitant]
     Active Substance: ALBUMIN HUMAN
     Indication: SUPPLEMENTATION THERAPY
     Dosage: 10 G, SOS
     Route: 042
     Dates: start: 20151203, end: 20151203
  79. DICLOFENAC SODIUM W/LIDOCAINE HYDROCHLORIDE [Concomitant]
     Indication: SEIZURE
     Dosage: 1 AMPULE,SOS
     Route: 042
     Dates: start: 20151204, end: 20151204
  80. PHOSPHOCREATINE SODIUM [Concomitant]
     Indication: PROPHYLAXIS
     Dosage: 1 G, SOS
     Route: 042
     Dates: start: 20151204, end: 20151204
  81. CETIRIZINE HYDROCHLORIDE. [Concomitant]
     Active Substance: CETIRIZINE HYDROCHLORIDE
     Indication: ALLERGY PROPHYLAXIS
     Dosage: 10 MG, SOS
     Route: 048
     Dates: start: 20151211, end: 20151211
  82. MUCOSOLVAN [Concomitant]
     Active Substance: AMBROXOL HYDROCHLORIDE
     Dosage: 15 MG, SOS
     Route: 055
     Dates: start: 20151204, end: 20151223
  83. MUCOSOLVAN [Concomitant]
     Active Substance: AMBROXOL HYDROCHLORIDE
     Dosage: 30 MG, BID
     Route: 042
     Dates: start: 20151224, end: 20151230
  84. MUCOSOLVAN [Concomitant]
     Active Substance: AMBROXOL HYDROCHLORIDE
     Dosage: 30 MG, SOS
     Route: 042
     Dates: start: 20151223, end: 20151223
  85. MYFORTIC [Suspect]
     Active Substance: MYCOPHENOLATE SODIUM
     Dosage: 540 MG, QD
     Route: 065
     Dates: start: 20151218, end: 20151221
  86. MYFORTIC [Suspect]
     Active Substance: MYCOPHENOLATE SODIUM
     Dosage: 720 MG, QD
     Route: 065
     Dates: start: 20151222, end: 20160107
  87. METHYLPREDNISOLONE. [Suspect]
     Active Substance: METHYLPREDNISOLONE
     Indication: RENAL TRANSPLANT
     Dosage: 500 MG, QD
     Route: 065
     Dates: start: 20151203, end: 20151203
  88. ADALAT [Concomitant]
     Active Substance: NIFEDIPINE
     Indication: HYPERTENSION
     Dosage: 30 MG, SOS
     Route: 048
     Dates: start: 20151206, end: 20151206
  89. ADALAT [Concomitant]
     Active Substance: NIFEDIPINE
     Dosage: 30 MG, SOS
     Route: 048
     Dates: start: 20151208, end: 20151208
  90. BACTERIAL LYSATES [Concomitant]
     Indication: INFECTION PROPHYLAXIS
     Dosage: 7 MG, QD
     Route: 048
     Dates: start: 20151213, end: 20151215
  91. BACTERIAL LYSATES [Concomitant]
     Dosage: 7 MG, QD
     Route: 048
     Dates: start: 20151213, end: 20151223
  92. CRAVIT [Concomitant]
     Active Substance: LEVOFLOXACIN
     Dosage: 100 ML, SOS
     Route: 042
     Dates: start: 20151220, end: 20151220
  93. PANTOPRAZOLE [Concomitant]
     Active Substance: PANTOPRAZOLE SODIUM
     Dosage: 40 MG, QD
     Route: 042
     Dates: start: 20151220, end: 20151223
  94. CEFOPERAZONE SODIUM W/SULBACTAM SODIUM [Concomitant]
     Indication: INFLAMMATION
     Dosage: 1500 MG, BID
     Route: 042
     Dates: start: 20151210, end: 20151216
  95. DILTIAZEM HYDROCHLORIDE. [Concomitant]
     Active Substance: DILTIAZEM HYDROCHLORIDE
     Dosage: 30 MG, BID
     Route: 048
     Dates: start: 20151206, end: 20151209
  96. VANCOMYCIN HYDROCHLORIDE. [Concomitant]
     Active Substance: VANCOMYCIN HYDROCHLORIDE
     Indication: INFLAMMATION
     Dosage: 500 MG, SOS
     Route: 042
     Dates: start: 20151222, end: 20151222
  97. DOPAMINE HYCROCHLORIDE [Concomitant]
     Active Substance: DOPAMINE HYDROCHLORIDE
     Dosage: 10 MG, SOS
     Route: 048
     Dates: start: 20160101, end: 20160108
  98. ALLERZIN//PROMETHAZINE HYDROCHLORIDE [Concomitant]
     Indication: ALLERGY PROPHYLAXIS
     Dosage: 25 MG, SOS
     Route: 030
     Dates: start: 20151211, end: 20151211
  99. POLYENE PHOSPHATIDYLCHOLINE [Concomitant]
     Active Substance: PHOSPHOLIPID
     Indication: PROPHYLAXIS
     Dosage: 456 MG, TID
     Route: 048
     Dates: start: 20151217, end: 20151223
  100. POLYENE PHOSPHATIDYLCHOLINE [Concomitant]
     Active Substance: PHOSPHOLIPID
     Dosage: 456 MG, TID
     Route: 048
     Dates: start: 20151224, end: 20151228
  101. MUCOSOLVAN [Concomitant]
     Active Substance: AMBROXOL HYDROCHLORIDE
     Dosage: 15 MG, TID
     Route: 055
     Dates: start: 20151224, end: 20151230
  102. LEVOCARNITINE. [Concomitant]
     Active Substance: LEVOCARNITINE
     Dosage: 2 VIALS, QD
     Route: 042
     Dates: start: 20151204, end: 20151218
  103. BASILIXIMAB [Suspect]
     Active Substance: BASILIXIMAB
     Dosage: 20 MG, QD
     Route: 065
     Dates: start: 20151207, end: 20151207
  104. METHYLPREDNISOLONE. [Suspect]
     Active Substance: METHYLPREDNISOLONE
     Dosage: 40 MG,SOS
     Route: 065
     Dates: start: 20151211, end: 20151211
  105. TACROLIMUS. [Suspect]
     Active Substance: TACROLIMUS
     Dosage: 20 MG, QD
     Route: 065
     Dates: start: 20151207, end: 20151207
  106. TACROLIMUS. [Suspect]
     Active Substance: TACROLIMUS
     Dosage: 3 MG, QD
     Route: 065
     Dates: start: 20160111, end: 20160112
  107. ALBUMIN [Concomitant]
     Active Substance: ALBUMIN HUMAN
     Dosage: 10 G, QD
     Route: 042
     Dates: start: 20151204, end: 20151206
  108. ADALAT [Concomitant]
     Active Substance: NIFEDIPINE
     Dosage: 30 MG, SOS
     Route: 048
     Dates: start: 20151207, end: 20151207
  109. BISOPROLOL FUMARATE. [Concomitant]
     Active Substance: BISOPROLOL FUMARATE
     Dosage: 5 MG, QD
     Route: 065
     Dates: start: 20160101
  110. CRAVIT [Concomitant]
     Active Substance: LEVOFLOXACIN
     Indication: INFECTION PROPHYLAXIS
     Dosage: 100 ML, SOS
     Route: 042
     Dates: start: 20151204, end: 20151204
  111. ALOSTIN//ALPROSTADIL [Concomitant]
     Indication: POOR PERIPHERAL CIRCULATION
     Dosage: 10 OT, QD
     Route: 042
     Dates: start: 20151204, end: 20151204
  112. MEROPENEM. [Concomitant]
     Active Substance: MEROPENEM
     Indication: INFECTION PROPHYLAXIS
     Dosage: 500 MG, TID
     Route: 042
     Dates: start: 20151221, end: 20151222
  113. DESLANOSIDE [Concomitant]
     Active Substance: DESLANOSIDE
     Indication: CARDIAC FAILURE
     Dosage: 200 MG, SOS
     Route: 042
     Dates: start: 20151205, end: 20151205
  114. CETIRIZINE HYDROCHLORIDE. [Concomitant]
     Active Substance: CETIRIZINE HYDROCHLORIDE
     Dosage: 10 MG, SOS
     Route: 048
     Dates: start: 20151225, end: 20151225
  115. DOPAMINE HYCROCHLORIDE [Concomitant]
     Active Substance: DOPAMINE HYDROCHLORIDE
     Dosage: 10 MG, SOS
     Route: 042
     Dates: start: 20151222, end: 20151222
  116. COENZYME [Concomitant]
     Active Substance: UBIDECARENONE
     Indication: SUPPLEMENTATION THERAPY
     Dosage: 2 DF, QD
     Route: 042
     Dates: start: 20151204, end: 20151204
  117. CEFOTIAM [Concomitant]
     Active Substance: CEFOTIAM
     Indication: INFECTION PROPHYLAXIS
     Dosage: 1000 MG, SOS
     Route: 042
     Dates: start: 20151204, end: 20151210
  118. FUROSEMID ^DAK^ [Concomitant]
     Dosage: 40 MG, SOS
     Route: 042
     Dates: start: 20151219, end: 20151219
  119. FUROSEMID ^DAK^ [Concomitant]
     Dosage: 40 MG, QD
     Route: 042
     Dates: start: 20151222, end: 20151223
  120. MYFORTIC [Suspect]
     Active Substance: MYCOPHENOLATE SODIUM
     Dosage: 1080 MG, QD
     Route: 065
     Dates: start: 20151206, end: 20151207
  121. MYFORTIC [Suspect]
     Active Substance: MYCOPHENOLATE SODIUM
     Dosage: 720 MG, QD
     Route: 065
     Dates: start: 20151208, end: 20151209
  122. MYFORTIC [Suspect]
     Active Substance: MYCOPHENOLATE SODIUM
     Dosage: 540 MG, QD
     Route: 065
     Dates: start: 20160101
  123. TACROLIMUS. [Suspect]
     Active Substance: TACROLIMUS
     Dosage: 3.5 MG, QD
     Route: 065
     Dates: start: 20151213, end: 20151217
  124. SODIUM CHLORIDE COMPOUND INJECTION [Concomitant]
     Dosage: 50 ML, UNK
     Route: 042
     Dates: start: 20151204, end: 20151204
  125. SODIUM CHLORIDE COMPOUND INJECTION [Concomitant]
     Dosage: 100 ML, SOS
     Route: 042
     Dates: start: 20151211, end: 20151211
  126. SODIUM CHLORIDE COMPOUND INJECTION [Concomitant]
     Dosage: 100 ML, SOS
     Route: 042
     Dates: start: 20151218, end: 20151218
  127. MOXIFLOXACIN//MOXIFLOXACIN HYDROCHLORIDE [Concomitant]
     Indication: INFLAMMATION
     Dosage: 400 MG, QD
     Route: 042
     Dates: start: 20151210, end: 20151214
  128. ALBUMIN [Concomitant]
     Active Substance: ALBUMIN HUMAN
     Indication: SUPPLEMENTATION THERAPY
     Dosage: 20 G, SOS
     Route: 042
     Dates: start: 20151204, end: 20151204
  129. PHENOBARB//PHENOBARBITAL SODIUM [Concomitant]
     Indication: ANAESTHETIC PREMEDICATION
     Dosage: 100 MG, SOS
     Route: 030
     Dates: start: 20151203, end: 20151203
  130. BISOPROLOL FUMARATE. [Concomitant]
     Active Substance: BISOPROLOL FUMARATE
     Dosage: 5 MG, QD
     Route: 048
     Dates: start: 20151223
  131. LIVARACINE [Concomitant]
     Dosage: 2500 IU,SOS
     Route: 061
     Dates: start: 20151219, end: 20151219
  132. MEROPENEM. [Concomitant]
     Active Substance: MEROPENEM
     Indication: INFLAMMATION
     Dosage: 500 MG, SOS
     Route: 042
     Dates: start: 20151221, end: 20151221
  133. SMECTA [Concomitant]
     Active Substance: MONTMORILLONITE
     Dosage: 6 G, SOS
     Route: 048
     Dates: start: 20151207, end: 20151207
  134. SMECTA [Concomitant]
     Active Substance: MONTMORILLONITE
     Dosage: 3 G, SOS
     Route: 048
     Dates: start: 20160110, end: 20160110
  135. SMECTA [Concomitant]
     Active Substance: MONTMORILLONITE
     Dosage: 3000 MG, TID
     Route: 048
     Dates: start: 20160110, end: 20160110
  136. VASOREL [Concomitant]
     Active Substance: TRIMETAZIDINE DIHYDROCHLORIDE
     Indication: PROPHYLAXIS
     Dosage: 20 MG, TID
     Route: 048
     Dates: start: 20151206, end: 20151223
  137. VANCOMYCIN HYDROCHLORIDE. [Concomitant]
     Active Substance: VANCOMYCIN HYDROCHLORIDE
     Dosage: 500 MG, SOS
     Route: 042
     Dates: start: 20151223, end: 20151223
  138. DOPAMINE HYCROCHLORIDE [Concomitant]
     Active Substance: DOPAMINE HYDROCHLORIDE
     Dosage: 10 MG, SOS
     Route: 048
     Dates: start: 20151228, end: 20151228
  139. FUROSEMID ^DAK^ [Concomitant]
     Dosage: 40 MG, SOS
     Route: 042
     Dates: start: 20151204, end: 20151204
  140. MEPREDNISONE [Concomitant]
     Active Substance: MEPREDNISONE
     Indication: PROPHYLAXIS AGAINST TRANSPLANT REJECTION
     Dosage: 15 MG, QD
     Route: 065
     Dates: start: 20160108, end: 20160214

REACTIONS (13)
  - Delayed graft function [Recovered/Resolved]
  - Nasopharyngitis [Not Recovered/Not Resolved]
  - Upper respiratory tract infection [Recovering/Resolving]
  - Throat irritation [Not Recovered/Not Resolved]
  - Productive cough [Recovered/Resolved]
  - Renal hypertension [Not Recovered/Not Resolved]
  - Pneumonia [Recovered/Resolved]
  - Diarrhoea [Recovering/Resolving]
  - Nephrogenic anaemia [Not Recovered/Not Resolved]
  - Body temperature increased [Recovered/Resolved]
  - Cough [Recovered/Resolved]
  - Blood creatinine increased [Not Recovered/Not Resolved]
  - Incision site pain [Recovering/Resolving]

NARRATIVE: CASE EVENT DATE: 20151205
